FAERS Safety Report 7302412-5 (Version None)
Quarter: 2011Q1

REPORT INFORMATION
  Report Type: 
  Country: None (occurrence: None)
  Receive Date: 20110218
  Receipt Date: 20110215
  Transmission Date: 20110831
  Serious: No
  Sender: FDA-Public Use
  Company Number: US-PFIZER INC-2011033721

PATIENT
  Sex: Female
  Weight: 54.422 kg

DRUGS (1)
  1. ADVIL [Suspect]
     Indication: SINUS HEADACHE
     Dosage: UNK
     Dates: start: 20110212, end: 20110213

REACTIONS (1)
  - GASTROINTESTINAL DISORDER [None]
